FAERS Safety Report 9646174 (Version 1)
Quarter: 2013Q4

REPORT INFORMATION
  Report Type: Spontaneous
  Country: US (occurrence: US)
  Receive Date: 20131025
  Receipt Date: 20131025
  Transmission Date: 20140711
  Serious: Yes (Other)
  Sender: FDA-Public Use
  Company Number: US-UCBSA-101123

PATIENT
  Sex: Male

DRUGS (1)
  1. VIMPAT [Suspect]
     Indication: CONVULSION

REACTIONS (4)
  - Convulsion [Unknown]
  - Hepatic enzyme increased [Unknown]
  - Hepatitis C [Unknown]
  - Anticonvulsant drug level increased [Unknown]
